FAERS Safety Report 9852770 (Version 1)
Quarter: 2014Q1

REPORT INFORMATION
  Report Type: Spontaneous
  Country: CN (occurrence: None)
  Receive Date: 20140127
  Receipt Date: 20140127
  Transmission Date: 20141002
  Serious: Yes (Other)
  Sender: FDA-Public Use
  Company Number: 2014HINLIT0039

PATIENT
  Age: 40 Year
  Sex: Male

DRUGS (2)
  1. LAMIVUDINE [Suspect]
     Indication: CHRONIC HEPATITIS B
     Dosage: 100 MG/DAY, UNKNOWN
  2. ADEFOVIR\LAMIVUDINE [Suspect]
     Dosage: 10 MG/ 50MG/DAY, UNKNOWN

REACTIONS (2)
  - Drug resistance [None]
  - Viral mutation identified [None]
